FAERS Safety Report 7471110-X (Version None)
Quarter: 2011Q2

REPORT INFORMATION
  Report Type: 
  Country: None (occurrence: None)
  Receive Date: 20110506
  Receipt Date: 20110506
  Transmission Date: 20111010
  Serious: No
  Sender: FDA-Public Use
  Company Number: None

PATIENT
  Sex: Male
  Weight: 68.0396 kg

DRUGS (4)
  1. OMEPRAZOLE [Suspect]
     Indication: GASTROOESOPHAGEAL REFLUX DISEASE
     Dosage: 20 MG 2 DAILY ORAL  YEAR 2000, 2002
     Route: 048
  2. OMEPRAZOLE [Suspect]
     Indication: HIATUS HERNIA
     Dosage: 20 MG 2 DAILY ORAL  YEAR 2000, 2002
     Route: 048
  3. PRILOSEC [Concomitant]
  4. CHLORDIAZ CLID [Concomitant]

REACTIONS (3)
  - GASTRIC DISORDER [None]
  - PRODUCT SUBSTITUTION ISSUE [None]
  - PRODUCT COATING ISSUE [None]
